FAERS Safety Report 14657222 (Version 1)
Quarter: 2018Q1

REPORT INFORMATION
  Report Type: Spontaneous
  Country: BE (occurrence: BE)
  Receive Date: 20180319
  Receipt Date: 20180319
  Transmission Date: 20180509
  Serious: Yes (Other)
  Sender: FDA-Public Use
  Company Number: BE-PFIZER INC-2018111034

PATIENT
  Age: 65 Year
  Sex: Female

DRUGS (5)
  1. PROPRANOLOL HYDROCHLORIDE. [Concomitant]
     Active Substance: PROPRANOLOL HYDROCHLORIDE
     Indication: HYPERTENSION
     Dosage: 10 MG, UNK
     Route: 048
  2. TAXOL [Suspect]
     Active Substance: PACLITAXEL
     Indication: BREAST CANCER METASTATIC
     Dosage: UNK
     Route: 065
     Dates: start: 201504, end: 20161011
  3. FULVESTRANT. [Concomitant]
     Active Substance: FULVESTRANT
     Indication: BREAST CANCER METASTATIC
     Dosage: 500 MG, UNK
     Route: 030
     Dates: start: 20161227
  4. IBRANCE [Concomitant]
     Active Substance: PALBOCICLIB
     Dosage: 125 MG, UNK
     Route: 065
  5. PALBOCICLIB [Suspect]
     Active Substance: PALBOCICLIB
     Indication: BREAST CANCER METASTATIC
     Dosage: 125 MG, QD
     Route: 065
     Dates: start: 20170111, end: 20170303

REACTIONS (3)
  - Thrombocytopenia [Unknown]
  - Neoplasm progression [Unknown]
  - Neuropathy peripheral [Recovering/Resolving]

NARRATIVE: CASE EVENT DATE: 201504
